FAERS Safety Report 8806676 (Version 2)
Quarter: 2012Q4

REPORT INFORMATION
  Report Type: 
  Country: AR (occurrence: AR)
  Receive Date: 20120925
  Receipt Date: 20121102
  Transmission Date: 20130627
  Serious: Yes (Hospitalization)
  Sender: FDA-Public Use
  Company Number: PHHY2012AR082493

PATIENT
  Sex: Female

DRUGS (2)
  1. VOLTAREN FORTE [Suspect]
     Indication: PAIN
     Dosage: 3 DF, Three tablets daily
     Route: 048
     Dates: start: 1998
  2. VOLTAREN [Suspect]

REACTIONS (4)
  - Cardiac arrest [Recovered/Resolved]
  - Gait disturbance [Not Recovered/Not Resolved]
  - Blood pressure increased [Recovered/Resolved]
  - Drug ineffective [Not Recovered/Not Resolved]
